FAERS Safety Report 7760882-2 (Version None)
Quarter: 2011Q3

REPORT INFORMATION
  Report Type: 
  Country: None (occurrence: None)
  Receive Date: 20110919
  Receipt Date: 20110915
  Transmission Date: 20111222
  Serious: Yes (Hospitalization)
  Sender: FDA-Public Use
  Company Number: US-GILEAD-2011-0043292

PATIENT
  Sex: Female

DRUGS (5)
  1. LETAIRIS [Suspect]
     Indication: PULMONARY HYPERTENSION
     Route: 048
     Dates: start: 20090224
  2. LETAIRIS [Suspect]
     Indication: LUNG DISORDER
  3. REVATIO [Concomitant]
  4. PROCRIT                            /00909301/ [Concomitant]
  5. LETAIRIS [Suspect]
     Indication: SCLERODERMA

REACTIONS (1)
  - DYSPEPSIA [None]
